FAERS Safety Report 19261970 (Version 1)
Quarter: 2021Q2

REPORT INFORMATION
  Report Type: Spontaneous
  Country: IS (occurrence: IS)
  Receive Date: 20210516
  Receipt Date: 20210516
  Transmission Date: 20210717
  Serious: Yes (Life-Threatening, Hospitalization, Disabling)
  Sender: FDA-Public Use
  Company Number: IS-JNJFOC-20210517312

PATIENT
  Age: 87 Year
  Sex: Female

DRUGS (8)
  1. LEVETIRACETAM ACTAVIS [Concomitant]
     Active Substance: LEVETIRACETAM
     Dosage: 1 TABLET IN THE MORNING, 1 TABLET IN THE EVENING
  2. AMILORIDE;HYDROCHLOROTHIAZIDE [Concomitant]
     Active Substance: AMILORIDE HYDROCHLORIDE\HYDROCHLOROTHIAZIDE
     Dosage: 1 TABLET ONCE PER DAY
  3. LEVETIRACETAM ACTAVIS [Concomitant]
     Active Substance: LEVETIRACETAM
     Dosage: 2 TABLETS IN THE MORNING, 2 IN THE EVENING
  4. KALEORID [Concomitant]
     Active Substance: POTASSIUM CHLORIDE
     Dosage: 2 TABLETS IN THE MORNING, ONE IN THE MIDDLE OF THE DAY
  5. XARELTO [Suspect]
     Active Substance: RIVAROXABAN
     Indication: ATRIAL FLUTTER
     Dosage: 1 PER DAY
     Route: 048
     Dates: start: 20210313
  6. METOPROLOL RATIOPHARM [METOPROLOL SUCCINATE] [Concomitant]
     Dosage: 1 TABLET IN THE MORNING, 1 TABLET IN THE EVENING
  7. XARELTO [Suspect]
     Active Substance: RIVAROXABAN
     Indication: ANTICOAGULANT THERAPY
  8. ESOMEPRAZOLE MAGNESIUM. [Concomitant]
     Active Substance: ESOMEPRAZOLE MAGNESIUM
     Dosage: 1 TABLET IN THE MORNING

REACTIONS (5)
  - Malaise [Not Recovered/Not Resolved]
  - Cerebral infarction [Not Recovered/Not Resolved]
  - Dysphagia [Not Recovered/Not Resolved]
  - Hemiparesis [Not Recovered/Not Resolved]
  - Muscle spasms [Not Recovered/Not Resolved]

NARRATIVE: CASE EVENT DATE: 20210320
